FAERS Safety Report 10169669 (Version 1)
Quarter: 2014Q2

REPORT INFORMATION
  Report Type: Spontaneous
  Country: US (occurrence: US)
  Receive Date: 20140513
  Receipt Date: 20140513
  Transmission Date: 20141212
  Serious: Yes (Hospitalization, Other)
  Sender: FDA-Public Use
  Company Number: US-ELI_LILLY_AND_COMPANY-US201405000619

PATIENT
  Age: 63 Year
  Sex: Male

DRUGS (6)
  1. HUMALOG 50% LISPRO, 50% NPL [Suspect]
     Indication: TYPE 2 DIABETES MELLITUS
     Dosage: 18 U, EACH MORNING
     Route: 065
  2. HUMALOG 50% LISPRO, 50% NPL [Suspect]
     Dosage: 12 U, EACH EVENING
     Route: 065
  3. HUMALOG 50% LISPRO, 50% NPL [Suspect]
     Indication: TYPE 2 DIABETES MELLITUS
     Route: 065
  4. HUMALOG LISPRO [Suspect]
     Indication: TYPE 2 DIABETES MELLITUS
     Route: 065
  5. HUMALOG LISPRO [Suspect]
     Indication: TYPE 2 DIABETES MELLITUS
     Route: 065
  6. PLAVIX [Suspect]
     Indication: PRODUCT USED FOR UNKNOWN INDICATION
     Dosage: UNK
     Route: 065

REACTIONS (6)
  - Hodgkin^s disease [Recovered/Resolved]
  - Cardiac failure congestive [Unknown]
  - Haemorrhage [Unknown]
  - Upper limb fracture [Unknown]
  - Fall [Unknown]
  - Heart rate irregular [Unknown]
